FAERS Safety Report 6069986-6 (Version None)
Quarter: 2009Q1

REPORT INFORMATION
  Report Type: 
  Country: None (occurrence: None)
  Receive Date: 20090129
  Receipt Date: 20090115
  Transmission Date: 20090719
  Serious: Yes (Death, Hospitalization)
  Sender: FDA-Public Use
  Company Number: THYM-1000883

PATIENT
  Age: 62 Year
  Sex: Female
  Weight: 74 kg

DRUGS (24)
  1. THYMOGLOBULIN [Suspect]
     Indication: BONE MARROW TRANSPLANT
     Dosage: 185 MG/DAY, QD
     Dates: start: 20081119, end: 20081120
  2. CYCLOSPORINE [Concomitant]
  3. METHOTREXATE [Concomitant]
  4. TAZOCILLINE (PIPERACILLIN SODIUM, TAZOBACTAM SODIUM) [Concomitant]
  5. CIPROFLOXACIN [Concomitant]
  6. TREOSULFAN (TREOSULFAN) [Concomitant]
  7. TERCIAN (CYAMEMAZINE) [Concomitant]
  8. ANAFRANIL [Concomitant]
  9. LORAZEPAM [Concomitant]
  10. NOCTRAN 10 (ACEPROMAZINE, ACEPROMETAZINE, CLORAZEPATE DIPOTASSIUM) [Concomitant]
  11. VALSARTAN [Concomitant]
  12. BISOPROLOL FUMARATE [Concomitant]
  13. LASIX [Concomitant]
  14. IMODIUM [Concomitant]
  15. FLAGYL [Concomitant]
  16. CORDARONE [Concomitant]
  17. DIGOXIN [Concomitant]
  18. ZOFRAN [Concomitant]
  19. FORLAX (MACROGOL) [Concomitant]
  20. VALIUM [Concomitant]
  21. ALLOPURINOL [Concomitant]
  22. FASTURTEC (RASBURICASE) [Concomitant]
  23. FLUDARA [Concomitant]
  24. VFEND [Concomitant]

REACTIONS (3)
  - CHOLESTASIS [None]
  - GENERAL PHYSICAL HEALTH DETERIORATION [None]
  - TOXIC EPIDERMAL NECROLYSIS [None]
